FAERS Safety Report 8455030-X (Version None)
Quarter: 2012Q2

REPORT INFORMATION
  Report Type: 
  Country: None (occurrence: None)
  Receive Date: 20120615
  Receipt Date: 20120615
  Transmission Date: 20120825
  Serious: Yes (Life-Threatening, Hospitalization, Other)
  Sender: FDA-Public Use
  Company Number: None

PATIENT
  Age: 59 Year
  Sex: Female
  Weight: 73.4827 kg

DRUGS (1)
  1. DIVALPROEX EXTENDED-RELEASE [Suspect]
     Indication: CONVULSION
     Dosage: 250 MG TB TWICE A DAY MORNING EVENING
     Dates: start: 20120521, end: 20120522

REACTIONS (6)
  - CHEST DISCOMFORT [None]
  - TONGUE DISORDER [None]
  - OBSTRUCTIVE AIRWAYS DISORDER [None]
  - MYOCARDIAL INFARCTION [None]
  - DYSPNOEA [None]
  - SWOLLEN TONGUE [None]
